FAERS Safety Report 6059271-0 (Version None)
Quarter: 2009Q1

REPORT INFORMATION
  Report Type: 
  Country: None (occurrence: None)
  Receive Date: 20090128
  Receipt Date: 20090128
  Transmission Date: 20090719
  Serious: Yes (Hospitalization)
  Sender: FDA-Public Use
  Company Number: None

PATIENT
  Age: 50 Year
  Sex: Female
  Weight: 87.6 kg

DRUGS (4)
  1. CEFAZOLIN [Suspect]
     Indication: PREOPERATIVE CARE
     Dosage: 1 G PRE OP IV
     Route: 042
     Dates: start: 20090119, end: 20090119
  2. CEFAZOLIN [Suspect]
     Dates: start: 20090119, end: 20090119
  3. CEFAZOLIN [Suspect]
  4. CEFAZOLIN [Suspect]

REACTIONS (3)
  - BLOOD PRESSURE DECREASED [None]
  - ERYTHEMA [None]
  - HEART RATE DECREASED [None]
